FAERS Safety Report 8334510-1 (Version None)
Quarter: 2012Q2

REPORT INFORMATION
  Report Type: 
  Country: None (occurrence: None)
  Receive Date: 20120503
  Receipt Date: 20120423
  Transmission Date: 20120825
  Serious: Yes (Hospitalization)
  Sender: FDA-Public Use
  Company Number: JP-PFIZER INC-2012087654

PATIENT
  Age: 68 Year
  Sex: Male
  Weight: 50.2 kg

DRUGS (43)
  1. EPLERENONE [Suspect]
     Dosage: ALTERNATE DAY
     Dates: start: 20120222
  2. OMEPRAZOLE [Concomitant]
     Indication: GASTRITIS PROPHYLAXIS
     Dosage: 10 MG, 1X/DAY
     Route: 048
     Dates: start: 20120218
  3. KETOPROFEN [Concomitant]
     Indication: RHEUMATOID ARTHRITIS
     Dosage: 2 DF, AS NEEDED
     Route: 062
  4. ACETAMINOPHEN [Concomitant]
     Indication: RHEUMATOID ARTHRITIS
     Dosage: 200 MG, AS NEEDED
     Route: 048
     Dates: start: 20120218
  5. WARFARIN [Concomitant]
     Indication: THROMBOSIS PROPHYLAXIS
     Dosage: 1 MG, 1X/DAY
     Route: 048
     Dates: start: 20120306, end: 20120312
  6. EPLERENONE [Suspect]
     Dosage: ALTERNATE DAY
     Dates: start: 20120206, end: 20120212
  7. KETOPROFEN [Concomitant]
     Indication: BACK PAIN
     Dosage: 2 DF, AS NEEDED
     Route: 062
     Dates: start: 20110701
  8. ALOSENN [Concomitant]
     Indication: CONSTIPATION
     Dosage: 0.5 MG, 1X/DAY
     Route: 048
     Dates: start: 20120222
  9. WARFARIN [Concomitant]
     Dosage: 2 MG, 1X/DAY
     Route: 048
     Dates: start: 20120316, end: 20120323
  10. MEROPENEM [Concomitant]
     Indication: PNEUMONIA
     Dosage: 0.5 G, 2X/DAY
     Route: 042
     Dates: start: 20120225, end: 20120312
  11. DOBUTREX [Concomitant]
     Dosage: CONTINUOUS IV DRIP 288 MG
     Route: 041
     Dates: start: 20120310, end: 20120311
  12. FEBUXOSTAT [Concomitant]
     Indication: HYPERURICAEMIA
     Dosage: 20 MG, 1X/DAY
     Route: 048
     Dates: start: 20110928
  13. PURSENNID [Concomitant]
     Indication: CONSTIPATION
     Dosage: 12 MG, 1X/DAY
     Route: 048
     Dates: start: 20120303, end: 20120327
  14. DOBUTREX [Concomitant]
     Dosage: CONTINUOUS IV DRIP 60 MG
     Route: 041
     Dates: start: 20120315, end: 20120315
  15. DOBUTREX [Concomitant]
     Dosage: CONTINUOUS IV DRIP 360 MG
     Route: 041
     Dates: start: 20120303, end: 20120308
  16. ACARDI [Concomitant]
     Indication: CARDIAC FAILURE CHRONIC
     Dosage: 2.5 MG, 2X/DAY
     Route: 048
     Dates: start: 20110128
  17. LENDORMIN [Concomitant]
     Indication: INSOMNIA
     Dosage: 0.25 MG, 1X/DAY
     Route: 048
  18. WARFARIN [Concomitant]
     Dosage: 1 MG, 1X/DAY
     Route: 048
     Dates: start: 20120329, end: 20120405
  19. DOBUTREX [Concomitant]
     Indication: HYPOTENSION
     Dosage: CONTINUOUS IV DRIP 220 MG
     Route: 041
     Dates: start: 20120302, end: 20120302
  20. DOBUTREX [Concomitant]
     Dosage: CONTINUOUS IV DRIP 331.5 MG
     Route: 041
     Dates: start: 20120309, end: 20120309
  21. DOBUTREX [Concomitant]
     Dosage: CONTINUOUS IV DRIP 105 MG
     Route: 041
     Dates: start: 20120314, end: 20120314
  22. HANP [Concomitant]
     Indication: CARDIAC FAILURE
     Dosage: CONTINUOUS IV DRIP 1920 UG
     Route: 041
     Dates: start: 20120227, end: 20120312
  23. EPLERENONE [Suspect]
     Indication: CARDIAC FAILURE CHRONIC
     Dosage: ALTERNATE DAY
     Dates: start: 20110903, end: 20111003
  24. CARVEDILOL [Concomitant]
     Dosage: 17.5 MG/DAY
     Route: 048
     Dates: start: 20120409
  25. WARFARIN [Concomitant]
     Dosage: 1 MG, 1X/DAY
     Route: 048
     Dates: start: 20120409
  26. HANP [Concomitant]
     Dosage: CONTINUOUS IV DRIP 1460 UG
     Route: 041
     Dates: start: 20120313, end: 20120313
  27. HANP [Concomitant]
     Dosage: CONTINUOUS IV DRIP 520 UG
     Route: 041
     Dates: start: 20120314, end: 20120314
  28. LASIX [Concomitant]
     Dosage: UNK
  29. AMIODARONE HYDROCHLORIDE [Concomitant]
     Indication: ATRIAL FIBRILLATION
     Dosage: 200 MG, 1X/DAY
     Route: 048
     Dates: start: 20120108
  30. VOLTAREN [Concomitant]
     Indication: RHEUMATOID ARTHRITIS
     Dosage: UNK
     Route: 062
     Dates: start: 20110319
  31. PURSENNID [Concomitant]
     Dosage: 24 MG, 1X/DAY
     Route: 048
     Dates: start: 20120328
  32. ZOLPIDEM [Concomitant]
     Indication: INSOMNIA
     Dosage: 5 MG, AS NEEDED
     Route: 048
     Dates: start: 20120325, end: 20120325
  33. FERRUM [Concomitant]
     Indication: IRON DEFICIENCY ANAEMIA
     Dosage: 100 MG, 1X/DAY
     Route: 048
     Dates: start: 20100216
  34. PREDNISOLONE [Concomitant]
     Indication: RHEUMATOID ARTHRITIS
     Dosage: 5 MG, 2X/DAY
     Route: 048
     Dates: start: 20111116
  35. WARFARIN [Concomitant]
     Dosage: 1.5 MG, 1X/DAY
     Route: 048
     Dates: start: 20120324, end: 20120328
  36. DOBUTREX [Concomitant]
     Dosage: CONTINUOUS IV DRIP 246 MG
     Route: 041
     Dates: start: 20120312, end: 20120312
  37. DOBUTREX [Concomitant]
     Dosage: CONTINUOUS IV DRIP 171 MG
     Route: 041
     Dates: start: 20120313, end: 20120313
  38. EPLERENONE [Suspect]
     Dosage: ALTERNATE DAY
     Dates: start: 20111028, end: 20120202
  39. CARVEDILOL [Concomitant]
     Indication: CARDIAC FAILURE CHRONIC
     Dosage: 7.5 MG, 2X/DAY
     Route: 048
     Dates: start: 20101127, end: 20120408
  40. LASIX [Concomitant]
     Indication: CARDIAC FAILURE CHRONIC
     Dosage: 20 MG, 1X/DAY
     Route: 048
     Dates: start: 20120204
  41. LASIX [Concomitant]
     Dosage: 20 MG, 1X/DAY
     Route: 042
     Dates: start: 20120314, end: 20120316
  42. MARZULENE S [Concomitant]
     Indication: PROPHYLAXIS
     Dosage: 2 G/DAY, (3 TIMES DAILY)
     Route: 048
     Dates: start: 20100216
  43. WARFARIN [Concomitant]
     Dosage: 1.5 MG, 1X/DAY
     Route: 048
     Dates: start: 20120313, end: 20120315

REACTIONS (1)
  - PNEUMOTHORAX [None]
